FAERS Safety Report 9287264 (Version 1)
Quarter: 2013Q2

REPORT INFORMATION
  Report Type: Spontaneous
  Country: CA (occurrence: CA)
  Receive Date: 20130513
  Receipt Date: 20130513
  Transmission Date: 20140414
  Serious: Yes (Hospitalization)
  Sender: FDA-Public Use
  Company Number: CA-B.I. PHARMACEUTICALS,INC./RIDGEFIELD-2013-CN-00834CN

PATIENT
  Age: 58 Year
  Sex: Male
  Weight: 93 kg

DRUGS (10)
  1. PRADAX [Suspect]
     Dosage: 300 MG
     Route: 048
  2. PRADAX [Suspect]
  3. ADVAIR 500 DISKUS [Concomitant]
  4. CRESTOR [Concomitant]
  5. INSPRA [Concomitant]
  6. PREDNISONE [Concomitant]
  7. RAMIPRIL [Concomitant]
  8. SPIRIVA [Concomitant]
  9. SULFASALAZINE [Concomitant]
  10. EZETROL [Concomitant]

REACTIONS (4)
  - Acute coronary syndrome [Not Recovered/Not Resolved]
  - Drug ineffective [Not Recovered/Not Resolved]
  - Ischaemic stroke [Not Recovered/Not Resolved]
  - Memory impairment [Not Recovered/Not Resolved]
